FAERS Safety Report 24207345 (Version 1)
Quarter: 2024Q3

REPORT INFORMATION
  Report Type: Spontaneous
  Country: CN (occurrence: CN)
  Receive Date: 20240813
  Receipt Date: 20240813
  Transmission Date: 20241017
  Serious: Yes (Hospitalization)
  Sender: ABBVIE
  Company Number: CN-PFIZER INC-PV202400102990

PATIENT
  Age: 53 Year
  Sex: Male
  Weight: 44 kg

DRUGS (7)
  1. AVIBACTAM SODIUM [Suspect]
     Active Substance: AVIBACTAM SODIUM
     Indication: Cerebral haemorrhage
     Dosage: TIME INTERVAL: 0.33333333 DAYS: 2.500 G, 3X/DAY
     Route: 041
     Dates: start: 20240712, end: 20240714
  2. ESOMEPRAZOLE SODIUM [Suspect]
     Active Substance: ESOMEPRAZOLE SODIUM
     Indication: Cerebral haemorrhage
     Dosage: 40.000 MG, 1X/DAY
     Route: 041
     Dates: start: 20240712, end: 20240724
  3. KEPPRA [Suspect]
     Active Substance: LEVETIRACETAM
     Indication: Cerebral haemorrhage
     Dosage: 0.500 G, 2X/DAY
     Route: 065
     Dates: start: 20240712, end: 20240714
  4. PIPERACILLIN SODIUM\SULBACTAM SODIUM [Concomitant]
     Active Substance: PIPERACILLIN SODIUM\SULBACTAM SODIUM
     Indication: Pneumonia
     Dosage: TIME INTERVAL: 0.33333333 DAYS: 3.75 G, 3X/DAY
     Route: 041
     Dates: start: 20240704, end: 20240710
  5. MEROPENEM [Concomitant]
     Active Substance: MEROPENEM
     Indication: Pneumonia
     Dosage: TIME INTERVAL: 0.33333333 DAYS: 0.5 G, 3X/DAY
     Route: 041
     Dates: start: 20240710, end: 20240712
  6. VANCOMYCIN [Suspect]
     Active Substance: VANCOMYCIN
     Indication: Pneumonia
     Dosage: TIME INTERVAL: 0.33333333 DAYS: 1 G, 3X/DAY
     Route: 041
     Dates: start: 20240708, end: 20240712
  7. VANCOMYCIN [Suspect]
     Active Substance: VANCOMYCIN
     Indication: Pneumonia
     Dosage: TIME INTERVAL: 0.33333333 DAYS: 0.500 G, 3X/DAY
     Route: 041
     Dates: start: 20240627, end: 20240708

REACTIONS (2)
  - White blood cell count decreased [Recovering/Resolving]
  - Rash [Recovering/Resolving]

NARRATIVE: CASE EVENT DATE: 20240712
